FAERS Safety Report 6618107-7 (Version None)
Quarter: 2010Q1

REPORT INFORMATION
  Report Type: 
  Country: None (occurrence: None)
  Receive Date: 20100308
  Receipt Date: 20100225
  Transmission Date: 20100710
  Serious: Yes (Hospitalization)
  Sender: FDA-Public Use
  Company Number: ES-ROCHE-684878

PATIENT
  Sex: Female
  Weight: 60 kg

DRUGS (10)
  1. TOCILIZUMAB [Suspect]
     Indication: RHEUMATOID ARTHRITIS
     Dosage: FORM: VIAL. TEMPORARILY INTERRUPTED.
     Route: 042
     Dates: start: 20090527
  2. TOCILIZUMAB [Suspect]
     Route: 042
     Dates: start: 20100127
  3. TOCILIZUMAB [Suspect]
     Dosage: FORM: INFUSION; RECEIVED IN STUDY MA21573
     Route: 042
     Dates: end: 20090527
  4. METILPREDNISOLONE [Suspect]
     Indication: DRUG USE FOR UNKNOWN INDICATION
     Route: 065
  5. HYGROTON [Concomitant]
  6. DILTIAZEM HCL [Concomitant]
  7. DOXAZOSIN MESYLATE [Concomitant]
  8. ALENDRONIC ACID [Concomitant]
  9. ACETAMINOPHEN [Concomitant]
  10. OMEPRAZOL [Concomitant]

REACTIONS (1)
  - APPENDICITIS [None]
